FAERS Safety Report 9855995 (Version 5)
Quarter: 2014Q2

REPORT INFORMATION
  Report Type: Report from Study
  Country: JP (occurrence: JP)
  Receive Date: 20140130
  Receipt Date: 20140529
  Transmission Date: 20141212
  Serious: Yes (Hospitalization)
  Sender: FDA-Public Use
  Company Number: JP-PFIZER INC-2014017803

PATIENT
  Age: 73 Year
  Sex: Male
  Weight: 55 kg

DRUGS (17)
  1. AXITINIB [Suspect]
     Indication: METASTATIC RENAL CELL CARCINOMA
     Dosage: 5 MG, 2X/DAY
     Route: 048
     Dates: start: 20110204, end: 20110306
  2. AXITINIB [Suspect]
     Dosage: 5 MG, 2X/DAY
     Route: 048
     Dates: start: 20110530, end: 20111204
  3. AXITINIB [Suspect]
     Dosage: 3 MG, 2X/DAY
     Route: 048
     Dates: start: 20111205, end: 20140220
  4. AXITINIB [Suspect]
     Dosage: UNK
     Dates: end: 20140415
  5. AXITINIB [Suspect]
     Indication: METASTATIC RENAL CELL CARCINOMA
     Dosage: AXITINIB PLUS AXITINIB DOSE TITRATION AT 7 MG TWICE DAILY
     Route: 048
     Dates: start: 20110307, end: 20110529
  6. AXITINIB [Suspect]
     Dosage: UNK
     Dates: end: 20140415
  7. TAKEPRON [Concomitant]
     Indication: GASTROOESOPHAGEAL REFLUX DISEASE
     Dosage: UNK
     Route: 048
     Dates: start: 20110129, end: 20140108
  8. LANSOPRAZOLE [Concomitant]
     Indication: GASTROOESOPHAGEAL REFLUX DISEASE
     Dosage: 30 MG, 1X/DAY, BEFORE BEDTIME
     Route: 048
     Dates: start: 20140109, end: 20140416
  9. ALESION [Concomitant]
     Indication: URTICARIA
     Dosage: 20 MG, 1X/DAY, BEFORE BEDTIME
     Route: 048
     Dates: start: 2008, end: 20140416
  10. ZYLORIC [Concomitant]
     Indication: HYPERURICAEMIA
     Dosage: 100 MG, 1X/DAY, AFTER BREAKFAST
     Route: 048
     Dates: start: 2010, end: 20140416
  11. AMLODIN [Concomitant]
     Indication: HYPERTENSION
     Dosage: 5 MG, 1X/DAY, AFTER BREAKFAST
     Route: 048
     Dates: start: 20110128, end: 20140407
  12. AMLODIN [Concomitant]
     Dosage: 2.5 MG, 1X/DAY, AFTER BREAKFAST
     Route: 048
     Dates: start: 20140408, end: 20140416
  13. OLMETEC [Concomitant]
     Indication: HYPERTENSION
     Dosage: 40 MG, DAILY
     Route: 048
     Dates: start: 20101209, end: 20140109
  14. OLMETEC [Concomitant]
     Dosage: 20 MG, 1X/DAY, AFTER DINNER
     Route: 048
     Dates: start: 20140110, end: 20140416
  15. STROCAIN [Concomitant]
     Indication: NAUSEA
     Dosage: 5 MG, 1X/DAY AFTER DINNER
     Route: 048
     Dates: start: 20140416, end: 20140416
  16. MIYA BM [Concomitant]
     Indication: NAUSEA
     Dosage: 1 DF, ONCE DAILY AFTER DINNER
     Route: 048
     Dates: start: 20140416, end: 20140416
  17. DIMETICONE, ACTIVATED [Concomitant]
     Indication: NAUSEA
     Dosage: 40 MG, 1X/DAY, AFTER DINNER
     Route: 048
     Dates: start: 20140416, end: 20140416

REACTIONS (3)
  - Second primary malignancy [Recovered/Resolved]
  - Colon cancer [Recovered/Resolved]
  - Ileus [Recovered/Resolved]
